FAERS Safety Report 10415130 (Version 2)
Quarter: 2015Q3

REPORT INFORMATION
  Report Type: Report from Study
  Country: US (occurrence: US)
  Receive Date: 20140828
  Receipt Date: 20150827
  Transmission Date: 20151125
  Serious: Yes (Death, Other)
  Sender: FDA-Public Use
  Company Number: US-ASTELLAS-2014US011093

PATIENT
  Age: 87 Year
  Sex: Male

DRUGS (2)
  1. AVASTIN [Suspect]
     Active Substance: BEVACIZUMAB
     Indication: MALIGNANT MELANOMA
     Route: 042
  2. ERLOTINIB [Suspect]
     Active Substance: ERLOTINIB
     Indication: PRODUCT USED FOR UNKNOWN INDICATION
     Dosage: UNK UNK, UNKNOWN FREQ.
     Route: 048

REACTIONS (5)
  - Metastasis [Unknown]
  - Off label use [Unknown]
  - Metastases to gastrointestinal tract [Unknown]
  - Malignant melanoma [Unknown]
  - Death [Fatal]

NARRATIVE: CASE EVENT DATE: 20060227
